FAERS Safety Report 4816650-4 (Version None)
Quarter: 2005Q4

REPORT INFORMATION
  Report Type: 
  Country: None (occurrence: None)
  Receive Date: 20051028
  Receipt Date: 20051018
  Transmission Date: 20060501
  Serious: Yes (Hospitalization, Other)
  Sender: FDA-Public Use
  Company Number: 2005PV001859

PATIENT
  Age: 52 Year
  Sex: Male
  Weight: 143.3367 kg

DRUGS (9)
  1. BYETTA [Suspect]
     Indication: DIABETES MELLITUS NON-INSULIN-DEPENDENT
     Dosage: SEE IMAGE
     Route: 058
     Dates: start: 20050901, end: 20020904
  2. BYETTA [Suspect]
     Indication: DIABETES MELLITUS NON-INSULIN-DEPENDENT
     Dosage: SEE IMAGE
     Route: 058
  3. AVANDAMET [Concomitant]
  4. ALTACE [Concomitant]
  5. ZOCOR [Concomitant]
  6. ASPIRIN [Concomitant]
  7. PROZAC [Concomitant]
  8. ULTRACET [Concomitant]
  9. PEPTO-BISMOL [Concomitant]

REACTIONS (3)
  - CHOLELITHIASIS [None]
  - NEPHROLITHIASIS [None]
  - PANCREATITIS ACUTE [None]
